FAERS Safety Report 6310364-X (Version None)
Quarter: 2009Q3

REPORT INFORMATION
  Report Type: 
  Country: None (occurrence: None)
  Receive Date: 20090811
  Receipt Date: 20090730
  Transmission Date: 20100115
  Serious: Yes (Other)
  Sender: FDA-Public Use
  Company Number: 2009AP003103

PATIENT
  Age: 77 Year
  Sex: Female

DRUGS (4)
  1. OMEPRAZOLE [Suspect]
     Dosage: 20 MG; QD; PO, 40 MG; QD; PO, 20 MG; QD; PO
     Route: 048
     Dates: end: 20090628
  2. OMEPRAZOLE [Suspect]
     Dosage: 20 MG; QD; PO, 40 MG; QD; PO, 20 MG; QD; PO
     Route: 048
     Dates: start: 20090609
  3. ESTRADIOL [Concomitant]
  4. ROSUVASTATIN [Concomitant]

REACTIONS (8)
  - CHEST DISCOMFORT [None]
  - CHEST PAIN [None]
  - DRY MOUTH [None]
  - DYSPHAGIA [None]
  - DYSPHONIA [None]
  - MUSCULOSKELETAL PAIN [None]
  - MYALGIA [None]
  - SLEEP DISORDER [None]
